FAERS Safety Report 6667445-0 (Version None)
Quarter: 2010Q2

REPORT INFORMATION
  Report Type: 
  Country: None (occurrence: None)
  Receive Date: 20100405
  Receipt Date: 20100325
  Transmission Date: 20101027
  Serious: Yes (Other)
  Sender: FDA-Public Use
  Company Number: JP-ROCHE-683565

PATIENT
  Sex: Male
  Weight: 73 kg

DRUGS (4)
  1. ROCEPHIN [Suspect]
     Indication: PNEUMONIA
     Dosage: FORM: INJECTION
     Route: 041
     Dates: start: 20100121, end: 20100127
  2. ADALAT CC [Concomitant]
     Dosage: DRUG: ADALAT-CR
     Route: 048
     Dates: start: 20100126
  3. DIOVAN [Concomitant]
     Route: 048
     Dates: start: 20100126
  4. VANCOMYCIN [Concomitant]
     Dosage: FORM: INJECTION
     Route: 041
     Dates: start: 20100122, end: 20100122

REACTIONS (1)
  - MYOCLONUS [None]
